FAERS Safety Report 5088016-6 (Version None)
Quarter: 2006Q3

REPORT INFORMATION
  Report Type: 
  Country: None (occurrence: None)
  Receive Date: 20060822
  Receipt Date: 20060822
  Transmission Date: 20061208
  Serious: Yes (Death)
  Sender: FDA-Public Use
  Company Number: None

PATIENT
  Age: 23 Year
  Sex: Male
  Weight: 118.8424 kg

DRUGS (5)
  1. PAROXETINE HCL [Suspect]
     Indication: ANXIETY
     Dosage: 40 MG. DAILY PO
     Route: 048
     Dates: start: 20050630, end: 20050729
  2. PAROXETINE HCL [Suspect]
     Indication: DEPRESSION
     Dosage: 40 MG. DAILY PO
     Route: 048
     Dates: start: 20050630, end: 20050729
  3. PAXIL [Concomitant]
  4. LEXAPRO [Concomitant]
  5. PROZAC [Concomitant]

REACTIONS (1)
  - COMPLETED SUICIDE [None]
